FAERS Safety Report 25344037 (Version 1)
Quarter: 2025Q2

REPORT INFORMATION
  Report Type: Spontaneous
  Country: US (occurrence: US)
  Receive Date: 20250521
  Receipt Date: 20250521
  Transmission Date: 20250716
  Serious: No
  Sender: SANOFI AVENTIS
  Company Number: US-SA-2025SA144012

PATIENT
  Sex: Female

DRUGS (6)
  1. DUPIXENT [Suspect]
     Active Substance: DUPILUMAB
     Indication: Nasal polyps
     Dosage: 300 MG, QOW
     Route: 058
     Dates: start: 20200313
  2. AZELASTINE [Concomitant]
     Active Substance: AZELASTINE
  3. BENZONATATE [Concomitant]
     Active Substance: BENZONATATE
  4. IPRATROPIUM [Concomitant]
     Active Substance: IPRATROPIUM
  5. PREDNISONE [Concomitant]
     Active Substance: PREDNISONE
  6. XHANCE [Concomitant]
     Active Substance: FLUTICASONE PROPIONATE

REACTIONS (1)
  - Product dose omission in error [Unknown]
